FAERS Safety Report 4804041-1 (Version None)
Quarter: 2005Q4

REPORT INFORMATION
  Report Type: 
  Country: None (occurrence: None)
  Receive Date: 20051018
  Receipt Date: 20051018
  Transmission Date: 20060501
  Serious: Yes (Hospitalization)
  Sender: FDA-Public Use
  Company Number: None

PATIENT
  Age: 34 Year
  Sex: Female

DRUGS (3)
  1. SULFAMETHOXAZOLE + TRIMETHOPRIM [Suspect]
     Indication: URINARY TRACT INFECTION
     Dosage: ORAL;160.0 MILLIGRAM
     Route: 048
     Dates: start: 20050814, end: 20050817
  2. METFORMIN [Concomitant]
  3. GABAPENTIN [Concomitant]

REACTIONS (2)
  - PYREXIA [None]
  - RASH PRURITIC [None]
